FAERS Safety Report 9824976 (Version 3)
Quarter: 2014Q1

REPORT INFORMATION
  Report Type: Spontaneous
  Country: JP (occurrence: JP)
  Receive Date: 20140117
  Receipt Date: 20140203
  Transmission Date: 20141002
  Serious: Yes (Death, Hospitalization)
  Sender: FDA-Public Use
  Company Number: JP-AMGEN-JPNSP2013076848

PATIENT
  Age: 62 Year
  Sex: Female
  Weight: 40 kg

DRUGS (7)
  1. ENBREL [Suspect]
     Indication: RHEUMATOID ARTHRITIS
     Dosage: 25 MG, 2X/WEEK
     Route: 058
     Dates: start: 20100611, end: 20101031
  2. ENBREL [Suspect]
     Dosage: 50 MG, WEEKLY
     Route: 058
     Dates: start: 20101105, end: 20130717
  3. RHEUMATREX                         /00113802/ [Concomitant]
     Dosage: 4 MG, WEEKLY
     Route: 048
     Dates: start: 200804
  4. RHEUMATREX                         /00113802/ [Concomitant]
     Dosage: 4 MG, WEEKLY
     Route: 048
     Dates: start: 20100611, end: 20130722
  5. RIMATIL [Concomitant]
     Dosage: 200 MG, DAILY
     Route: 048
     Dates: start: 200604
  6. RIMATIL [Concomitant]
     Dosage: 100 MG, 2X/DAY
     Route: 048
     Dates: start: 20100611, end: 20130722
  7. PREDNISOLONE [Concomitant]
     Dosage: 5 MG, 1X/DAY
     Route: 048
     Dates: start: 20100611, end: 20130722

REACTIONS (2)
  - Interstitial lung disease [Fatal]
  - Cardiac failure [Fatal]
